FAERS Safety Report 25085765 (Version 2)
Quarter: 2025Q3

REPORT INFORMATION
  Report Type: Spontaneous
  Country: CH (occurrence: CH)
  Receive Date: 20250317
  Receipt Date: 20250810
  Transmission Date: 20251021
  Serious: Yes (Hospitalization, Other)
  Sender: ALEXION PHARMACEUTICALS
  Company Number: CH-ASTRAZENECA-202503GLO012266CH

PATIENT
  Age: 52 Year
  Sex: Female

DRUGS (12)
  1. QUETIAPINE FUMARATE [Suspect]
     Active Substance: QUETIAPINE FUMARATE
     Dosage: QUETIAPINE (SEQUASE XR) RET TAB 150 MG 1 TAB AT BEDTIME
     Dates: start: 20240917
  2. QUETIAPINE FUMARATE [Suspect]
     Active Substance: QUETIAPINE FUMARATE
     Dosage: QUETIAPINE (SEQUASE XR) RET TAB 150 MG 1 TAB AT BEDTIME
     Dates: start: 20211216, end: 20240916
  3. QUETIAPINE FUMARATE [Suspect]
     Active Substance: QUETIAPINE FUMARATE
     Dosage: QUETIAPINE (SEROQUEL) PELL TAB 100 MG 1 CPR EVENING
     Dates: start: 20250124
  4. QUETIAPINE FUMARATE [Suspect]
     Active Substance: QUETIAPINE FUMARATE
     Dosage: QUETIAPINE (SEROQUEL) PELL TAB 100 MG 1 CPR EVENING
     Dates: start: 20211216, end: 20250123
  5. XANAX [Suspect]
     Active Substance: ALPRAZOLAM
     Route: 065
     Dates: start: 20240914, end: 20240914
  6. XANAX [Suspect]
     Active Substance: ALPRAZOLAM
     Dosage: ALPRAZOLAM (XANAX) RETARD 1 MG,1/2 TAB IN THE MORNING, 1/2 TAB AT NOON
     Route: 065
     Dates: start: 20240506
  7. XANAX [Suspect]
     Active Substance: ALPRAZOLAM
     Dosage: ALPRAZOLAM (XANAX) RETARD 1 MG,1/2 TAB IN THE MORNING, 1/2 TAB AT NOON
     Route: 065
     Dates: start: 20250127
  8. XANAX [Suspect]
     Active Substance: ALPRAZOLAM
     Route: 065
  9. FLURAZEPAM HYDROCHLORIDE [Suspect]
     Active Substance: FLURAZEPAM HYDROCHLORIDE
     Route: 065
     Dates: start: 20250214, end: 20250214
  10. FLURAZEPAM HYDROCHLORIDE [Suspect]
     Active Substance: FLURAZEPAM HYDROCHLORIDE
     Dosage: MITE DRY TAB 15MG 1 TAB IN THE EVENING
     Route: 065
     Dates: start: 20240925
  11. VENLAFAXINE [Suspect]
     Active Substance: VENLAFAXINE HYDROCHLORIDE
  12. VENLAFAXINE [Suspect]
     Active Substance: VENLAFAXINE HYDROCHLORIDE
     Dosage: VENLAFAXINE (VENLAX ER) CAPS RET 75 MG IN THE MORNING
     Route: 065
     Dates: start: 20211216, end: 20240916

REACTIONS (4)
  - Altered state of consciousness [Recovered/Resolved]
  - Hyperlactacidaemia [Recovered/Resolved]
  - Drug interaction [Recovered/Resolved]
  - Drug interaction [Recovered/Resolved]

NARRATIVE: CASE EVENT DATE: 20250214
